FAERS Safety Report 17889667 (Version 1)
Quarter: 2020Q2

REPORT INFORMATION
  Report Type: Spontaneous
  Country: US (occurrence: US)
  Receive Date: 20200612
  Receipt Date: 20200612
  Transmission Date: 20200714
  Serious: Yes (Hospitalization)
  Sender: FDA-Public Use
  Company Number: US-MYLANLABS-2020M1055177

PATIENT
  Age: 63 Year
  Sex: Male

DRUGS (6)
  1. ZIPRASIDONE. [Interacting]
     Active Substance: ZIPRASIDONE
     Indication: DEPRESSION
     Dosage: CHRONIC REGIMEN
     Route: 065
  2. DESVENLAFAXINE SUCCINATE. [Interacting]
     Active Substance: DESVENLAFAXINE SUCCINATE
     Indication: DEPRESSION
     Dosage: CHRONIC REGIMEN
     Route: 065
  3. KRATOM [Interacting]
     Active Substance: HERBALS\MITRAGYNINE
     Indication: DEPRESSION
     Dosage: UNK
     Route: 065
  4. BUSPIRONE [Interacting]
     Active Substance: BUSPIRONE HYDROCHLORIDE
     Indication: DEPRESSION
     Dosage: CHRONIC REGIMEN
     Route: 065
  5. TRAZODONE [Interacting]
     Active Substance: TRAZODONE HYDROCHLORIDE
     Indication: DEPRESSION
     Dosage: CHRONIC REGIMEN
     Route: 065
  6. BUPROPION. [Suspect]
     Active Substance: BUPROPION
     Indication: DEPRESSION
     Dosage: CHRONIC REGIMEN
     Route: 065

REACTIONS (2)
  - Drug interaction [Recovering/Resolving]
  - Serotonin syndrome [Recovering/Resolving]
